FAERS Safety Report 13578904 (Version 1)
Quarter: 2017Q2

REPORT INFORMATION
  Report Type: Spontaneous
  Country: US (occurrence: US)
  Receive Date: 20170524
  Receipt Date: 20170524
  Transmission Date: 20170830
  Serious: Yes (Other)
  Sender: FDA-Public Use
  Company Number: None

PATIENT
  Age: 74 Year
  Sex: Female
  Weight: 54.93 kg

DRUGS (1)
  1. HUMIRA [Suspect]
     Active Substance: ADALIMUMAB
     Indication: PSORIATIC ARTHROPATHY
     Dosage: 40MG/0.8 Q 2 WKS SUB Q INJECTIOIN
     Route: 058

REACTIONS (3)
  - Rash [None]
  - Diarrhoea [None]
  - Injury [None]

NARRATIVE: CASE EVENT DATE: 20170522
